FAERS Safety Report 10672948 (Version 1)
Quarter: 2014Q4

REPORT INFORMATION
  Report Type: Spontaneous
  Country: US (occurrence: US)
  Receive Date: 20141223
  Receipt Date: 20141223
  Transmission Date: 20150529
  Serious: No
  Sender: FDA-Public Use
  Company Number: US-009507513-1412USA007255

PATIENT
  Sex: Female

DRUGS (2)
  1. PROVENTIL [Suspect]
     Active Substance: ALBUTEROL
     Dosage: UNK
     Route: 055
     Dates: start: 2014
  2. PROVENTIL [Suspect]
     Active Substance: ALBUTEROL
     Dosage: ONE TO TWO PUFFS EVERY FOUR TO SIX HOURS AS NEEDED, ORAL INHALATION
     Route: 055

REACTIONS (5)
  - Drug dose omission [Unknown]
  - Device use error [Unknown]
  - No adverse event [Unknown]
  - Product quality issue [Unknown]
  - Expired product administered [Unknown]
